FAERS Safety Report 4950131-2 (Version None)
Quarter: 2006Q1

REPORT INFORMATION
  Report Type: 
  Country: None (occurrence: None)
  Receive Date: 20060316
  Receipt Date: 20060306
  Transmission Date: 20060701
  Serious: Yes (Life-Threatening)
  Sender: FDA-Public Use
  Company Number: DE-2005-022285

PATIENT
  Age: 26 Year
  Sex: Female
  Weight: 60 kg

DRUGS (2)
  1. PETIBELLE 30 (21) (DROSPIRENONE, ETHINYLESTRADIOL) FILM TABLET [Suspect]
     Indication: ORAL CONTRACEPTION
     Dosage: ORAL
     Route: 048
     Dates: start: 20050701
  2. PAROXETINE [Concomitant]

REACTIONS (3)
  - CONDITION AGGRAVATED [None]
  - DEPRESSION [None]
  - SUICIDAL IDEATION [None]
